FAERS Safety Report 9822348 (Version 1)
Quarter: 2014Q1

REPORT INFORMATION
  Report Type: Spontaneous
  Country: US (occurrence: US)
  Receive Date: 20140116
  Receipt Date: 20140116
  Transmission Date: 20141002
  Serious: Yes (Other)
  Sender: FDA-Public Use
  Company Number: US-ASTRAZENECA-2014SE02329

PATIENT
  Age: 36 Year
  Sex: Female
  Weight: 53.5 kg

DRUGS (10)
  1. NEXIUM [Suspect]
     Indication: GASTROOESOPHAGEAL REFLUX DISEASE
     Dosage: TWICE DAILY
     Route: 048
  2. NEXIUM [Suspect]
     Indication: PROPHYLAXIS
     Dosage: TWICE DAILY
     Route: 048
  3. NEXIUM [Suspect]
     Indication: HIATUS HERNIA
     Dosage: TWICE DAILY
     Route: 048
  4. NEXIUM [Suspect]
     Indication: GASTROOESOPHAGEAL REFLUX DISEASE
     Route: 048
     Dates: start: 2013
  5. NEXIUM [Suspect]
     Indication: PROPHYLAXIS
     Route: 048
     Dates: start: 2013
  6. NEXIUM [Suspect]
     Indication: HIATUS HERNIA
     Route: 048
     Dates: start: 2013
  7. CORTEF [Concomitant]
     Indication: PITUITARY TUMOUR REMOVAL
     Dosage: 12.5 MG,10 MG 1 TAB IN AM AND PM
     Route: 048
     Dates: start: 2000
  8. SINGULAIR [Concomitant]
     Indication: ASTHMA
     Route: 048
  9. CORVITE [Concomitant]
     Indication: BLOOD IRON DECREASED
     Dosage: UNKNOWN 3 TIMES A WEEK
     Route: 048
     Dates: start: 201308
  10. NASONEX [Concomitant]
     Indication: HYPERSENSITIVITY
     Dosage: UNKNOWN TAKES IT WHEN SHE RE
     Route: 045
     Dates: start: 2008

REACTIONS (3)
  - Thyroid neoplasm [Unknown]
  - Intentional drug misuse [Unknown]
  - Off label use [Unknown]
